FAERS Safety Report 24232273 (Version 1)
Quarter: 2024Q3

REPORT INFORMATION
  Report Type: Spontaneous
  Country: BR (occurrence: BR)
  Receive Date: 20240821
  Receipt Date: 20240821
  Transmission Date: 20241017
  Serious: Yes (Other)
  Sender: BAYER
  Company Number: BR-BAYER-2024A119354

PATIENT
  Age: 37 Year
  Sex: Female

DRUGS (1)
  1. MIRENA [Suspect]
     Active Substance: LEVONORGESTREL
     Dosage: 20?G/DAY
     Route: 015
     Dates: start: 2022

REACTIONS (3)
  - Ectopic pregnancy with contraceptive device [None]
  - Uterine haematoma [None]
  - Drug ineffective [None]

NARRATIVE: CASE EVENT DATE: 20240701
